FAERS Safety Report 10271367 (Version 1)
Quarter: 2014Q3

REPORT INFORMATION
  Report Type: Spontaneous
  Country: DE (occurrence: DE)
  Receive Date: 20140701
  Receipt Date: 20140701
  Transmission Date: 20150326
  Serious: Yes (Other)
  Sender: FDA-Public Use
  Company Number: DE-TEVA-490321GER

PATIENT
  Age: 4 Decade
  Sex: Female
  Weight: 72 kg

DRUGS (6)
  1. FOLIO FORTE [Concomitant]
     Active Substance: FOLIC ACID\VITAMINS
     Indication: PROPHYLAXIS OF NEURAL TUBE DEFECT
     Dosage: .8 MILLIGRAM DAILY;
     Route: 048
     Dates: start: 20130502, end: 20140127
  2. CITALOPRAM [Suspect]
     Active Substance: CITALOPRAM HYDROBROMIDE
     Indication: DEPRESSION
     Dosage: 20 MILLIGRAM DAILY;
     Route: 048
     Dates: start: 20130502, end: 20140127
  3. OMEPRAZOL [Concomitant]
     Active Substance: OMEPRAZOLE
     Indication: GASTRITIS PROPHYLAXIS
     Route: 048
  4. L-THYROXIN 100 [Concomitant]
     Indication: HYPOTHYROIDISM
     Dosage: 100 MICROGRAM DAILY;
     Route: 048
     Dates: start: 20130502, end: 20140127
  5. IBUPROFEN LYSINATE [Concomitant]
     Active Substance: IBUPROFEN
     Indication: HEADACHE
     Dosage: 500 [MG/D ]/ ON DEMAND
     Route: 048
  6. RENNIE [Concomitant]
     Active Substance: MAGNESIUM CARBONATE
     Indication: DYSPEPSIA
     Route: 048
     Dates: start: 20130502, end: 20140127

REACTIONS (1)
  - HELLP syndrome [Recovered/Resolved]
